FAERS Safety Report 4577963-7 (Version None)
Quarter: 2005Q1

REPORT INFORMATION
  Report Type: 
  Country: None (occurrence: None)
  Receive Date: 20050203
  Receipt Date: 20050203
  Transmission Date: 20050727
  Serious: Yes (Death)
  Sender: FDA-Public Use
  Company Number: None

PATIENT
  Age: 60 Year
  Sex: Male

DRUGS (1)
  1. LOVENOX [Suspect]
     Dosage: 80 MG SQ Q 12 H
     Route: 058
     Dates: start: 20041211, end: 20041225

REACTIONS (2)
  - HAEMORRHAGE [None]
  - RETROPERITONEAL HAEMATOMA [None]
